FAERS Safety Report 12548122 (Version 1)
Quarter: 2016Q3

REPORT INFORMATION
  Report Type: Spontaneous
  Country: FR (occurrence: FR)
  Receive Date: 20160712
  Receipt Date: 20160712
  Transmission Date: 20161109
  Serious: Yes (Hospitalization)
  Sender: FDA-Public Use
  Company Number: FR-ROCHE-1792421

PATIENT
  Age: 73 Year
  Sex: Female

DRUGS (9)
  1. COAPROVEL [Concomitant]
     Active Substance: HYDROCHLOROTHIAZIDE\IRBESARTAN
     Dosage: COAPROVEL 300 MG/12.5 MG 1 DF/DAY
     Route: 065
  2. AMLOR [Concomitant]
     Active Substance: AMLODIPINE BESYLATE
     Dosage: AMLOR 10 MG 1 DF/DAY
     Route: 065
  3. MOPRAL [Concomitant]
     Active Substance: OMEPRAZOLE SODIUM
     Dosage: MOPRAL 20 MG 1 DF/DAY
     Route: 065
  4. ROACTEMRA [Suspect]
     Active Substance: TOCILIZUMAB
     Indication: RHEUMATOID ARTHRITIS
     Route: 041
     Dates: start: 201408, end: 20151228
  5. GLUCOPHAGE [Concomitant]
     Active Substance: METFORMIN HYDROCHLORIDE
     Dosage: 1 G 1 DF THRICE/DAY
     Route: 065
  6. CONTRAMAL LP [Concomitant]
     Active Substance: TRAMADOL HYDROCHLORIDE
     Dosage: CONTRAMAL LP 150 MG 1 DF TWICE/DAY
     Route: 065
  7. CRESTOR [Concomitant]
     Active Substance: ROSUVASTATIN CALCIUM
     Dosage: CRESTOR 5 MG 1 DF/DAY
     Route: 065
  8. KARDEGIC [Concomitant]
     Active Substance: ASPIRIN LYSINE
     Dosage: KARDEGIC 75 MG 1 DF/DAY
     Route: 065
  9. TENORMIN [Concomitant]
     Active Substance: ATENOLOL
     Dosage: TENORMINE 100 MG 1 DF/DAY
     Route: 065

REACTIONS (1)
  - Pleurisy [Recovering/Resolving]

NARRATIVE: CASE EVENT DATE: 20160121
